FAERS Safety Report 6148800-4 (Version None)
Quarter: 2009Q2

REPORT INFORMATION
  Report Type: 
  Country: None (occurrence: None)
  Receive Date: 20090408
  Receipt Date: 20090408
  Transmission Date: 20091009
  Serious: Yes (Hospitalization)
  Sender: FDA-Public Use
  Company Number: GR-ABBOTT-09P-066-0565587-00

PATIENT
  Age: 74 Year
  Sex: Male
  Weight: 77.8 kg

DRUGS (10)
  1. ZEMPLAR [Suspect]
     Indication: HYPERPARATHYROIDISM SECONDARY
     Route: 042
     Dates: start: 20080809
  2. ARANESP [Concomitant]
     Indication: ANAEMIA
     Route: 042
  3. VENOFER [Concomitant]
     Indication: ANAEMIA
     Dosage: 1 VIAL EVERY 2 WEEKS
     Route: 042
  4. FORSENOL [Concomitant]
     Indication: HYPERPHOSPHATAEMIA
     Route: 048
  5. RENAGEL [Concomitant]
     Indication: HYPERPHOSPHATAEMIA
     Route: 048
  6. ZURCAZOL [Concomitant]
     Indication: PROPHYLAXIS AGAINST GASTROINTESTINAL ULCER
     Route: 048
  7. FILICINE [Concomitant]
     Indication: ANAEMIA
     Route: 048
  8. ZYLAPOUR [Concomitant]
     Indication: HYPERURICAEMIA
     Route: 048
  9. MONOSORDIL [Concomitant]
     Indication: CORONARY ARTERY DISEASE
     Route: 048
  10. DILATREND [Concomitant]
     Indication: CORONARY ARTERY DISEASE
     Dosage: 6.25MG - 1/2 TABLET TWICE DAILY
     Route: 048

REACTIONS (1)
  - THROMBOCYTOPENIA [None]
